FAERS Safety Report 10246858 (Version 1)
Quarter: 2014Q2

REPORT INFORMATION
  Report Type: Spontaneous
  Country: US (occurrence: US)
  Receive Date: 20140619
  Receipt Date: 20140619
  Transmission Date: 20141212
  Serious: Yes (Hospitalization)
  Sender: FDA-Public Use
  Company Number: US-JNJFOC-20140610585

PATIENT
  Sex: Female
  Weight: 58.06 kg

DRUGS (1)
  1. SIMPONI [Suspect]
     Indication: RHEUMATOID ARTHRITIS
     Route: 058

REACTIONS (3)
  - Hernia [Recovered/Resolved]
  - Abnormal loss of weight [Not Recovered/Not Resolved]
  - Device malfunction [Unknown]
